FAERS Safety Report 15320780 (Version 2)
Quarter: 2018Q3

REPORT INFORMATION
  Report Type: Spontaneous
  Country: US (occurrence: US)
  Receive Date: 20180827
  Receipt Date: 20180914
  Transmission Date: 20181010
  Serious: No
  Sender: FDA-Public Use
  Company Number: US-HORIZON-KRY-0254-2018

PATIENT
  Age: 50 Year
  Sex: Male

DRUGS (2)
  1. KRYSTEXXA [Suspect]
     Active Substance: PEGLOTICASE
     Indication: GOUT
     Dates: start: 201805, end: 201808
  2. COLCRYS [Concomitant]
     Active Substance: COLCHICINE

REACTIONS (1)
  - Chest discomfort [Recovered/Resolved]

NARRATIVE: CASE EVENT DATE: 201808
